FAERS Safety Report 7517060-1 (Version None)
Quarter: 2011Q2

REPORT INFORMATION
  Report Type: 
  Country: None (occurrence: None)
  Receive Date: 20110503
  Receipt Date: 20100325
  Transmission Date: 20111010
  Serious: Yes (Hospitalization)
  Sender: FDA-Public Use
  Company Number: KV201000103

PATIENT
  Age: 55 Year
  Sex: Male
  Weight: 88.4 kg

DRUGS (10)
  1. LIPITOR [Concomitant]
  2. VITAMIN B-12 [Concomitant]
  3. ASPIRIN [Concomitant]
  4. NITROGLYCERIN [Concomitant]
  5. MULTIVITAMIN /00831701/ (VITAMINS NOS) [Concomitant]
  6. GARLIC /01570501/ (ALLIUM SATIVUM) [Concomitant]
  7. ISOSORBIDE MONONITRATE [Suspect]
     Indication: MYOCARDIAL ISCHAEMIA
     Dosage: 30 MG, QD, ORAL
     Route: 048
  8. LISINOPRIL [Concomitant]
  9. LOPRESSOR [Concomitant]
  10. SIMVASTATIN [Concomitant]

REACTIONS (15)
  - CHEST PAIN [None]
  - COUGH [None]
  - PULMONARY CONGESTION [None]
  - DIZZINESS [None]
  - LEUKOCYTOSIS [None]
  - HYPERHIDROSIS [None]
  - HAEMATOCHEZIA [None]
  - DYSPNOEA [None]
  - BRONCHITIS [None]
  - ANGINA UNSTABLE [None]
  - NAUSEA [None]
  - ARTHRALGIA [None]
  - RECTAL HAEMORRHAGE [None]
  - FEELING ABNORMAL [None]
  - ABDOMINAL PAIN [None]
